FAERS Safety Report 21036900 (Version 2)
Quarter: 2022Q3

REPORT INFORMATION
  Report Type: Report from Study
  Country: US (occurrence: US)
  Receive Date: 20220702
  Receipt Date: 20220817
  Transmission Date: 20221026
  Serious: Yes (Other)
  Sender: FDA-Public Use
  Company Number: US-TAKEDA-2022TUS043209

PATIENT
  Sex: Male

DRUGS (2)
  1. MARIBAVIR [Suspect]
     Active Substance: MARIBAVIR
     Indication: Cytomegalovirus infection
     Dosage: 400 MILLIGRAM, BID
     Route: 048
     Dates: start: 20220430, end: 20220730
  2. FOSCAVIR [Concomitant]
     Active Substance: FOSCARNET SODIUM
     Indication: Product used for unknown indication
     Dosage: UNK UNK, QD
     Route: 042

REACTIONS (2)
  - Renal impairment [Unknown]
  - Viral load increased [Unknown]
